FAERS Safety Report 20925470 (Version 1)
Quarter: 2022Q2

REPORT INFORMATION
  Report Type: Spontaneous
  Country: US (occurrence: None)
  Receive Date: 20220607
  Receipt Date: 20220607
  Transmission Date: 20220720
  Serious: Yes (Hospitalization)
  Sender: FDA-Public Use
  Company Number: None

PATIENT
  Age: 74 Year
  Sex: Male
  Weight: 55 kg

DRUGS (1)
  1. FLUTICASONE PROPIONATE\SALMETEROL XINAFOATE [Suspect]
     Active Substance: FLUTICASONE PROPIONATE\SALMETEROL XINAFOATE
     Indication: Upper respiratory tract infection
     Dosage: 1 PUFF(S) BID PO?
     Route: 048
     Dates: start: 20220125, end: 20220303

REACTIONS (9)
  - Dysphagia [None]
  - Oesophageal candidiasis [None]
  - Atrial fibrillation [None]
  - COVID-19 pneumonia [None]
  - Abdominal pain [None]
  - Palpitations [None]
  - Pneumonia fungal [None]
  - Mycobacterium avium complex infection [None]
  - Congestive hepatopathy [None]

NARRATIVE: CASE EVENT DATE: 20220228
